FAERS Safety Report 8049954 (Version 14)
Quarter: 2014Q3

REPORT INFORMATION
  Report Type: Report from Study
  Country: DE (occurrence: DE)
  Receive Date: 20110722
  Receipt Date: 20140714
  Transmission Date: 20150326
  Serious: Yes (Hospitalization)
  Sender: FDA-Public Use
  Company Number: DE-UCBSA-036846

PATIENT
  Sex: Female
  Weight: 67 kg

DRUGS (12)
  1. TRAMADOLOR [Concomitant]
     Active Substance: TRAMADOL
     Indication: RHEUMATOID ARTHRITIS
     Dosage: 50 -100 MG
     Dates: start: 20100701, end: 201112
  2. DEKRISTOL [Concomitant]
     Active Substance: CHOLECALCIFEROL
     Dosage: 1000 IU, WEEKLY (QW)
  3. METEX [Suspect]
     Active Substance: METFORMIN HYDROCHLORIDE
     Indication: RHEUMATOID ARTHRITIS
     Dosage: QS
     Route: 051
     Dates: start: 200504, end: 201202
  4. METEX [Suspect]
     Active Substance: METFORMIN HYDROCHLORIDE
     Dosage: 20 MG/W
     Dates: start: 201102
  5. TEBESIUM [Concomitant]
     Active Substance: ISONIAZID\PYRIDOXINE
     Indication: ANTIBIOTIC PROPHYLAXIS
     Dosage: 300 MG, ONCE DAILY (QD)
     Dates: start: 20100506, end: 201102
  6. PALLADONE [Concomitant]
     Active Substance: HYDROMORPHONE HYDROCHLORIDE
     Dosage: 1.3 MG TABLET UPTO 4X1 MAX EVERY 6 HRS
  7. CLEXANE [Concomitant]
     Active Substance: ENOXAPARIN SODIUM
     Indication: THROMBOSIS PROPHYLAXIS
     Dosage: 40 MG, ONCE DAILY (QD)
     Dates: start: 201102, end: 201108
  8. FOLSAURE [Concomitant]
     Active Substance: FOLIC ACID
     Indication: DRUG TOXICITY PROPHYLAXIS
     Dosage: SUFFICIENT QUANTITY
     Dates: start: 20050414
  9. CERTOLIZUMAB PEGOL RA [Suspect]
     Active Substance: CERTOLIZUMAB PEGOL
     Indication: RHEUMATOID ARTHRITIS
     Dosage: NUMBER OF DOSES RECEIVED: 22
     Route: 058
     Dates: start: 20100430, end: 20110201
  10. DEKRISTOL [Concomitant]
     Active Substance: CHOLECALCIFEROL
     Indication: OSTEOPOROSIS
     Dosage: QS
     Dates: start: 20101215
  11. PREDNISOLONE. [Concomitant]
     Active Substance: PREDNISOLONE
     Indication: RHEUMATOID ARTHRITIS
     Dosage: 5 MG, ONCE DAILY (QD)
     Dates: start: 200007
  12. ARCOXIA [Concomitant]
     Active Substance: ETORICOXIB
     Indication: RHEUMATOID ARTHRITIS
     Dosage: 90 MG, ONCE DAILY (QD)
     Dates: start: 200703

REACTIONS (3)
  - Joint arthroplasty [Not Recovered/Not Resolved]
  - Postoperative wound infection [Recovered/Resolved]
  - Pelvic fracture [Recovering/Resolving]

NARRATIVE: CASE EVENT DATE: 20110214
